FAERS Safety Report 18860445 (Version 1)
Quarter: 2021Q1

REPORT INFORMATION
  Report Type: Report from Study
  Country: US (occurrence: US)
  Receive Date: 20210208
  Receipt Date: 20210208
  Transmission Date: 20210420
  Serious: Yes (Other)
  Sender: FDA-Public Use
  Company Number: US-MYLANLABS-2021M1007147

PATIENT
  Age: 26 Year

DRUGS (10)
  1. IDARUBICIN [Suspect]
     Active Substance: IDARUBICIN
     Indication: BLAST CELL CRISIS
  2. CYTARABINE. [Suspect]
     Active Substance: CYTARABINE
     Indication: CHRONIC MYELOID LEUKAEMIA
     Dosage: 0.75 G/M2 ON DAYS 1?5
     Route: 042
  3. PONATINIB [Suspect]
     Active Substance: PONATINIB
     Indication: CHRONIC MYELOID LEUKAEMIA
     Dosage: UNK
     Route: 065
  4. CLOFARABINE. [Suspect]
     Active Substance: CLOFARABINE
     Indication: BLAST CELL CRISIS
  5. VENETOCLAX. [Suspect]
     Active Substance: VENETOCLAX
     Indication: CHRONIC MYELOID LEUKAEMIA
     Dosage: 400 MILLIGRAM, QD
     Route: 065
  6. IDARUBICIN [Suspect]
     Active Substance: IDARUBICIN
     Indication: CHRONIC MYELOID LEUKAEMIA
     Dosage: 6 MILLIGRAM/SQ. METER, ON DAYS 1?3
     Route: 042
  7. VENETOCLAX. [Suspect]
     Active Substance: VENETOCLAX
     Indication: BLAST CELL CRISIS
  8. CYTARABINE. [Suspect]
     Active Substance: CYTARABINE
     Indication: BLAST CELL CRISIS
  9. CLOFARABINE. [Suspect]
     Active Substance: CLOFARABINE
     Indication: CHRONIC MYELOID LEUKAEMIA
     Dosage: ON DAYS 1?5
     Route: 042
  10. PONATINIB [Suspect]
     Active Substance: PONATINIB
     Indication: BLAST CELL CRISIS

REACTIONS (1)
  - Drug ineffective [Unknown]
